FAERS Safety Report 4402039-9 (Version None)
Quarter: 2004Q3

REPORT INFORMATION
  Report Type: 
  Country: None (occurrence: None)
  Receive Date: 20040714
  Receipt Date: 20040630
  Transmission Date: 20050211
  Serious: Yes (Death, Other)
  Sender: FDA-Public Use
  Company Number: US_0407104001

PATIENT
  Age: 27 Year
  Sex: Male
  Weight: 142 kg

DRUGS (2)
  1. OLANZAPINE [Suspect]
     Indication: BIPOLAR DISORDER
     Dosage: 7.5 MG DAY
  2. FLUOXETINE HCL [Suspect]
     Indication: BIPOLAR DISORDER

REACTIONS (14)
  - BLOOD PRESSURE DIASTOLIC INCREASED [None]
  - COMA [None]
  - CORONARY ARTERY ATHEROSCLEROSIS [None]
  - DYSPNOEA [None]
  - FAT NECROSIS [None]
  - HEPATIC STEATOSIS [None]
  - HYPERGLYCAEMIA [None]
  - KETOACIDOSIS [None]
  - PANCREATIC ENLARGEMENT [None]
  - PANCREATITIS NECROTISING [None]
  - PULMONARY OEDEMA [None]
  - RESPIRATORY RATE DECREASED [None]
  - SKIN ODOUR ABNORMAL [None]
  - SPLENOMEGALY [None]
